FAERS Safety Report 5811119-2 (Version None)
Quarter: 2008Q3

REPORT INFORMATION
  Report Type: 
  Country: None (occurrence: None)
  Receive Date: 20080716
  Receipt Date: 20080707
  Transmission Date: 20090109
  Serious: Yes (Other)
  Sender: FDA-Public Use
  Company Number: PHHY2008JP11617

PATIENT
  Age: 19 Year
  Sex: Female

DRUGS (2)
  1. LUDIOMIL [Suspect]
     Dosage: 25 MG /DAY
     Route: 048
     Dates: start: 20080603, end: 20080616
  2. SOLANAX [Concomitant]
     Dosage: UNK
     Route: 048
     Dates: start: 20080603, end: 20080616

REACTIONS (1)
  - ERYTHEMA MULTIFORME [None]
